FAERS Safety Report 9404999 (Version 1)
Quarter: 2013Q3

REPORT INFORMATION
  Report Type: Spontaneous
  Country: US (occurrence: US)
  Receive Date: 20130717
  Receipt Date: 20130717
  Transmission Date: 20140515
  Serious: Yes (Hospitalization)
  Sender: FDA-Public Use
  Company Number: US-BRISTOL-MYERS SQUIBB COMPANY-18770719

PATIENT
  Age: 66 Year
  Sex: Male
  Weight: 78.46 kg

DRUGS (1)
  1. YERVOY [Suspect]
     Indication: MALIGNANT LYMPHOID NEOPLASM
     Dosage: NO OF TREATMENTS 4?DOSES OF DATE: OCTOBER 2012,NOV12,24DC12,18JAN13

REACTIONS (3)
  - Diarrhoea [Recovered/Resolved]
  - Constipation [Unknown]
  - Adrenal disorder [Unknown]
